FAERS Safety Report 7966024-2 (Version None)
Quarter: 2011Q4

REPORT INFORMATION
  Report Type: 
  Country: None (occurrence: None)
  Receive Date: 20111208
  Receipt Date: 20111124
  Transmission Date: 20120403
  Serious: Yes (Life-Threatening, Hospitalization, Other)
  Sender: FDA-Public Use
  Company Number: KR-B.I. PHARMACEUTICALS,INC./RIDGEFIELD-2011-EU-00741GD

PATIENT
  Age: 25 Year
  Sex: Male

DRUGS (3)
  1. AIRTAL [Concomitant]
     Indication: TENDONITIS
     Dosage: 100 MG
     Route: 048
  2. ZANTAC [Suspect]
     Dosage: 50 MG
     Route: 042
  3. ZANTAC [Suspect]
     Indication: PROPHYLAXIS AGAINST GASTROINTESTINAL ULCER
     Dosage: 75 MG
     Route: 048

REACTIONS (11)
  - RESPIRATORY ARREST [None]
  - RADIAL PULSE ABNORMAL [None]
  - RASH [None]
  - LOSS OF CONSCIOUSNESS [None]
  - ERYTHEMA [None]
  - AURICULAR SWELLING [None]
  - HEADACHE [None]
  - ANAPHYLACTIC REACTION [None]
  - PRURITUS [None]
  - DYSPNOEA [None]
  - THROAT TIGHTNESS [None]
